FAERS Safety Report 8237515-4 (Version None)
Quarter: 2012Q1

REPORT INFORMATION
  Report Type: 
  Country: None (occurrence: None)
  Receive Date: 20120327
  Receipt Date: 20120322
  Transmission Date: 20120608
  Serious: Yes (Other)
  Sender: FDA-Public Use
  Company Number: PHEH2012US005489

PATIENT
  Sex: Female

DRUGS (5)
  1. M.V.I. [Concomitant]
     Indication: SUPPLEMENTATION THERAPY
     Route: 048
  2. VESICARE [Concomitant]
     Indication: MICTURITION URGENCY
     Dosage: 10 MG, QD
     Route: 048
  3. GILENYA [Suspect]
     Indication: RELAPSING-REMITTING MULTIPLE SCLEROSIS
     Dosage: 0.5 MG, QD
     Route: 048
     Dates: start: 20120106, end: 20120223
  4. ASPIRIN [Concomitant]
     Dosage: 81 MG, QD
     Route: 048
  5. VITAMIN D [Concomitant]
     Indication: SUPPLEMENTATION THERAPY
     Dosage: 400 U, QD
     Route: 048

REACTIONS (2)
  - PALPITATIONS [None]
  - HYPERSENSITIVITY [None]
